FAERS Safety Report 8987715 (Version 2)
Quarter: 2013Q1

REPORT INFORMATION
  Report Type: Report from Study
  Country: JP (occurrence: JP)
  Receive Date: 20121227
  Receipt Date: 20130313
  Transmission Date: 20140127
  Serious: Yes (Other)
  Sender: FDA-Public Use
  Company Number: JP-VERTEX PHARMACEUTICALS INC.-2012-026588

PATIENT
  Age: 59 Year
  Sex: Female

DRUGS (16)
  1. VX-950 (TELAPREVIR) [Suspect]
     Indication: CHRONIC HEPATITIS C
     Dosage: 1500 MG, QD
     Route: 048
     Dates: start: 20120904, end: 20121001
  2. VX-950 (TELAPREVIR) [Suspect]
     Dosage: 750 MG, QD
     Route: 048
     Dates: start: 20121002, end: 20121126
  3. RIBAVIRIN [Suspect]
     Indication: CHRONIC HEPATITIS C
     Dosage: 400 MG, QD
     Route: 048
     Dates: end: 20120925
  4. RIBAVIRIN [Suspect]
     Dosage: 200 MG, QD
     Route: 048
     Dates: start: 20120926, end: 20120217
  5. PEGINTERFERON ALFA-2B [Suspect]
     Indication: CHRONIC HEPATITIS C
     Dosage: 1.37 ?G/KG, QW
     Route: 058
     Dates: start: 20120904, end: 20120910
  6. PEGINTERFERON ALFA-2B [Suspect]
     Dosage: 0.71 ?G/KG, QW
     Route: 058
     Dates: start: 20120911, end: 20120924
  7. PEGINTERFERON ALFA-2B [Suspect]
     Dosage: 1.07 ?G/KG, QW
     Route: 058
     Dates: start: 20120925, end: 20121126
  8. PEGINTERFERON ALFA-2B [Suspect]
     Dosage: 0.71 ?G/KG, QW
     Route: 058
     Dates: start: 20121127, end: 20121210
  9. PEGINTERFERON ALFA-2B [Suspect]
     Dosage: 0.36 ?G/KG, QW
     Dates: start: 20121211, end: 20121224
  10. ALLEGRA [Concomitant]
     Dosage: 120 MG, QD
     Route: 048
     Dates: start: 20120910, end: 20130107
  11. ZYLORIC [Concomitant]
     Dosage: 200 MG, QD
     Route: 048
     Dates: start: 20120918, end: 20121217
  12. LENDORMIN [Concomitant]
     Dosage: UNK, PRN
     Route: 048
     Dates: start: 20120925, end: 20121217
  13. RINDERON [Concomitant]
     Dosage: UNK
     Route: 051
     Dates: start: 20121002, end: 20121022
  14. BIO-THREE [Concomitant]
     Dosage: 3 DF, QD
     Route: 048
     Dates: start: 20121002, end: 20121224
  15. DOGMATYL [Concomitant]
     Dosage: 100 MG, QD
     Route: 048
     Dates: start: 20121107, end: 20121224
  16. PARIET [Concomitant]
     Dosage: 10 MG, QD
     Route: 048
     Dates: end: 20130107

REACTIONS (3)
  - Retinopathy [Recovered/Resolved]
  - Anaemia [Recovered/Resolved]
  - Exposure during pregnancy [Unknown]
